FAERS Safety Report 20992196 (Version 1)
Quarter: 2022Q2

REPORT INFORMATION
  Report Type: Spontaneous
  Country: SA (occurrence: None)
  Receive Date: 20220622
  Receipt Date: 20220622
  Transmission Date: 20220721
  Serious: Yes (Life-Threatening, Other)
  Sender: FDA-Public Use
  Company Number: SA-Hikma Pharmaceuticals-SA-H14001-22-01548

PATIENT
  Age: 76 Year
  Sex: Female

DRUGS (4)
  1. NOREPINEPHRINE [Suspect]
     Active Substance: NOREPINEPHRINE
     Indication: Vasopressive therapy
     Dosage: LOW DOSE
     Route: 041
  2. NOREPINEPHRINE [Suspect]
     Active Substance: NOREPINEPHRINE
     Dosage: DOSE WAS INCREASED
     Route: 013
  3. INSULIN NOS [Concomitant]
     Active Substance: INSULIN NOS
     Indication: Blood glucose increased
     Dosage: UNKNOWN
     Route: 041
  4. CRYSTALLOID FLUIDS [Concomitant]
     Indication: Hypotension
     Route: 065

REACTIONS (9)
  - Drug ineffective [Unknown]
  - Incorrect route of product administration [Unknown]
  - Peripheral ischaemia [Unknown]
  - Cyanosis [Unknown]
  - Pulse absent [Unknown]
  - Thrombosis [Unknown]
  - Subclavian artery occlusion [Unknown]
  - Oedema [Unknown]
  - Arterial injury [Unknown]
